FAERS Safety Report 4613638-3 (Version None)
Quarter: 2005Q1

REPORT INFORMATION
  Report Type: 
  Country: None (occurrence: None)
  Receive Date: 20050318
  Receipt Date: 20050318
  Transmission Date: 20050727
  Serious: Yes (Hospitalization)
  Sender: FDA-Public Use
  Company Number: None

PATIENT
  Sex: Female
  Weight: 54.8852 kg

DRUGS (10)
  1. LEVAQUIN [Suspect]
     Indication: BRONCHITIS
     Dosage: 500 MG PO QD STARTED 6 DAYS PRIOR
     Route: 048
  2. LEVAQUIN [Suspect]
     Indication: BRONCHITIS
     Dosage: SWITCHED TO 750MG PO QD STARTED 2 DAYS PRIOR TO ER VISIT
     Route: 048
  3. RISPERDAL [Concomitant]
  4. MYCELEX [Concomitant]
  5. NEURONTIN [Concomitant]
  6. AMBIEN [Concomitant]
  7. METHADONE HCL [Concomitant]
  8. TOFRANIL [Concomitant]
  9. LEVAQUIN [Concomitant]
  10. COMBIVIR [Concomitant]

REACTIONS (1)
  - HALLUCINATION [None]
